FAERS Safety Report 5724096-X (Version None)
Quarter: 2008Q2

REPORT INFORMATION
  Report Type: 
  Country: None (occurrence: None)
  Receive Date: 20080430
  Receipt Date: 20080428
  Transmission Date: 20081010
  Serious: Yes (Life-Threatening, Disabling, Other)
  Sender: FDA-Public Use
  Company Number: DE-BOEHRINGER INGELHEIM GMBH, GERMANY-2008-DE-00489DE

PATIENT
  Sex: Male
  Weight: 79 kg

DRUGS (6)
  1. PRAMIPEXOLE DIHYDROCHLORIDE [Suspect]
     Indication: RESTLESS LEGS SYNDROME
     Route: 048
     Dates: start: 20061017, end: 20071029
  2. PRAMIPEXOLE DIHYDROCHLORIDE [Suspect]
     Route: 048
     Dates: end: 20071030
  3. ADARTREL [Concomitant]
  4. ALFUZOSIN HCL [Concomitant]
     Indication: BENIGN PROSTATIC HYPERPLASIA
     Route: 048
     Dates: start: 20070901, end: 20080331
  5. INEGY [Concomitant]
     Indication: BLOOD CHOLESTEROL INCREASED
     Route: 048
  6. RESTEX [Concomitant]
     Indication: RESTLESS LEGS SYNDROME
     Dosage: 1X1 AS REQUIRED
     Route: 048
     Dates: start: 20040101

REACTIONS (25)
  - BLOOD PRESSURE DECREASED [None]
  - BLOOD PRESSURE FLUCTUATION [None]
  - BLOOD TEST ABNORMAL [None]
  - CONDITION AGGRAVATED [None]
  - DELUSION [None]
  - DIZZINESS [None]
  - GAIT DISTURBANCE [None]
  - HALLUCINATION [None]
  - INSOMNIA [None]
  - LIBIDO DECREASED [None]
  - LYMPH NODE PAIN [None]
  - LYMPHADENOPATHY [None]
  - MENTAL DISORDER [None]
  - MOVEMENT DISORDER [None]
  - MUSCLE SPASMS [None]
  - NERVOUSNESS [None]
  - NEUROMUSCULAR BLOCKADE [None]
  - PAIN IN EXTREMITY [None]
  - PARALYSIS [None]
  - QUALITY OF LIFE DECREASED [None]
  - STRESS [None]
  - TREMOR [None]
  - VEIN DISORDER [None]
  - VISUAL DISTURBANCE [None]
  - WITHDRAWAL SYNDROME [None]
